FAERS Safety Report 23090956 (Version 1)
Quarter: 2023Q4

REPORT INFORMATION
  Report Type: Spontaneous
  Country: US (occurrence: US)
  Receive Date: 20231020
  Receipt Date: 20231020
  Transmission Date: 20240110
  Serious: Yes (Hospitalization)
  Sender: FDA-Public Use
  Company Number: US-SPECGX-T202302032

PATIENT
  Age: 38 Year
  Sex: Male

DRUGS (2)
  1. DEXTROAMPHET SACCHARAT, AMPHET ASPARTATE, DEXTROAMPHET SULFATE AND AMP [Suspect]
     Active Substance: AMPHETAMINE ASPARTATE\AMPHETAMINE ASPARTATE MONOHYDRATE\AMPHETAMINE SULFATE\DEXTROAMPHETAMINE SACCHA
     Indication: Product used for unknown indication
     Dosage: UNK
     Route: 065
  2. ENOXAPARIN [Suspect]
     Active Substance: ENOXAPARIN
     Indication: Prophylaxis
     Dosage: 1 DOSAGE FORM
     Route: 065

REACTIONS (7)
  - Pulmonary haemorrhage [Unknown]
  - Loss of consciousness [Unknown]
  - Haemoptysis [Unknown]
  - Acute respiratory failure [Recovering/Resolving]
  - Pulmonary oedema [Unknown]
  - Toxicity to various agents [Unknown]
  - Substance use [Unknown]
